FAERS Safety Report 25492713 (Version 1)
Quarter: 2025Q2

REPORT INFORMATION
  Report Type: Spontaneous
  Country: GB (occurrence: GB)
  Receive Date: 20250630
  Receipt Date: 20250630
  Transmission Date: 20250716
  Serious: Yes (Disabling, Other)
  Sender: BOEHRINGER INGELHEIM
  Company Number: None

PATIENT
  Age: 31 Year
  Sex: Male
  Weight: 72 kg

DRUGS (2)
  1. PRAMIPEXOLE [Suspect]
     Active Substance: PRAMIPEXOLE
     Indication: Restless legs syndrome
  2. LEVOTHYROXINE\LIOTHYRONINE [Concomitant]
     Active Substance: LEVOTHYROXINE\LIOTHYRONINE
     Indication: Thyroid disorder
     Dates: start: 20071003, end: 202410

REACTIONS (7)
  - Malabsorption [Not Recovered/Not Resolved]
  - Sexually active [Recovering/Resolving]
  - Neurosis [Not Recovered/Not Resolved]
  - Therapy change [Not Recovered/Not Resolved]
  - Insomnia [Not Recovered/Not Resolved]
  - Mood altered [Not Recovered/Not Resolved]
  - Depression [Not Recovered/Not Resolved]

NARRATIVE: CASE EVENT DATE: 20061003
